FAERS Safety Report 6420620-2 (Version None)
Quarter: 2009Q4

REPORT INFORMATION
  Report Type: 
  Country: None (occurrence: None)
  Receive Date: 20091027
  Receipt Date: 20091013
  Transmission Date: 20100525
  Serious: No
  Sender: FDA-Public Use
  Company Number: 900828435-AKO-4979AE

PATIENT

DRUGS (1)
  1. GENTAK [Suspect]
     Dosage: OPHTHALMIC
     Route: 047
     Dates: start: 20090928

REACTIONS (3)
  - EYE DISCHARGE [None]
  - EYE SWELLING [None]
  - OCULAR HYPERAEMIA [None]
